FAERS Safety Report 9317672 (Version 1)
Quarter: 2013Q2

REPORT INFORMATION
  Report Type: Spontaneous
  Country: US (occurrence: None)
  Receive Date: 20130529
  Receipt Date: 20130529
  Transmission Date: 20140414
  Serious: No
  Sender: FDA-Public Use
  Company Number: None

PATIENT
  Age: 49 Year
  Sex: Female
  Weight: 77.11 kg

DRUGS (11)
  1. PANTOPRAZOLE [Suspect]
     Indication: GASTROOESOPHAGEAL REFLUX DISEASE
     Dosage: 40MG?1 PILL?1X DAILY HR BEFORE BREAKFAST?BY MOUTH?
     Route: 048
     Dates: start: 20130517, end: 20130521
  2. LOSARTAN [Concomitant]
  3. KLOR CON M [Concomitant]
  4. HYDROCHLOROT [Concomitant]
  5. AZELASINE HCL [Concomitant]
  6. SUMATRIPTAN [Concomitant]
  7. MULTI VITAMIN [Concomitant]
  8. CALCIUM [Concomitant]
  9. FISH OIL [Concomitant]
  10. VIT C [Concomitant]
  11. EVENING PRIMROSE OIL [Concomitant]

REACTIONS (3)
  - Diarrhoea [None]
  - Flatulence [None]
  - Abdominal pain upper [None]
